FAERS Safety Report 23918738 (Version 1)
Quarter: 2024Q2

REPORT INFORMATION
  Report Type: Spontaneous
  Country: FI (occurrence: FI)
  Receive Date: 20240530
  Receipt Date: 20240530
  Transmission Date: 20240716
  Serious: Yes (Other)
  Sender: FDA-Public Use
  Company Number: FI-JNJFOC-20240575525

PATIENT
  Age: 43 Year
  Sex: Male

DRUGS (1)
  1. IMODIUM [Suspect]
     Active Substance: LOPERAMIDE HYDROCHLORIDE
     Indication: Irritable bowel syndrome
     Dosage: 1 TABLET AND I HAVE SPLIT THE TABLET IN HALF BECAUSE I DONT NEED A FULL ONE
     Route: 048
     Dates: start: 2023

REACTIONS (8)
  - Erectile dysfunction [Recovered/Resolved]
  - Prostatic disorder [Recovered/Resolved]
  - Pollakiuria [Recovered/Resolved]
  - Dysuria [Recovered/Resolved]
  - Genital hypoaesthesia [Recovered/Resolved]
  - Nasal congestion [Recovered/Resolved]
  - Gastrointestinal disorder [Recovered/Resolved]
  - Headache [Recovered/Resolved]

NARRATIVE: CASE EVENT DATE: 20240201
